FAERS Safety Report 12817274 (Version 1)
Quarter: 2016Q4

REPORT INFORMATION
  Report Type: Spontaneous
  Country: US (occurrence: US)
  Receive Date: 20161005
  Receipt Date: 20161005
  Transmission Date: 20170207
  Serious: Yes (Hospitalization)
  Sender: FDA-Public Use
  Company Number: None

PATIENT
  Age: 57 Year
  Sex: Female
  Weight: 72.9 kg

DRUGS (3)
  1. AROMASIN [Concomitant]
     Active Substance: EXEMESTANE
  2. ZOMETA [Concomitant]
     Active Substance: ZOLEDRONIC ACID
  3. AFINITOR [Suspect]
     Active Substance: EVEROLIMUS
     Indication: BREAST CANCER METASTATIC
     Route: 048
     Dates: start: 20160826, end: 20160909

REACTIONS (4)
  - Pyrexia [None]
  - Anaemia [None]
  - Haemolysis [None]
  - Thrombocytopenia [None]

NARRATIVE: CASE EVENT DATE: 20160908
